FAERS Safety Report 8106369-9 (Version None)
Quarter: 2012Q1

REPORT INFORMATION
  Report Type: 
  Country: None (occurrence: None)
  Receive Date: 20120130
  Receipt Date: 20120113
  Transmission Date: 20120608
  Serious: Yes (Hospitalization)
  Sender: FDA-Public Use
  Company Number: 2012HGS-003148

PATIENT
  Age: 37 Year
  Sex: Female
  Weight: 58.9676 kg

DRUGS (6)
  1. BENLYSTA [Suspect]
     Indication: SYSTEMIC LUPUS ERYTHEMATOSUS
     Dosage: 568 MG, 1 IN 28 D, INTRAVENOUS
     Route: 042
     Dates: start: 20120109
  2. DURAGESIC-100 [Concomitant]
  3. PLAQUENIL [Concomitant]
  4. ZANTAC [Concomitant]
  5. ASCORBIC ACID [Concomitant]
  6. OMEGA-3 (OMEGA-3 TRIGLYCERIDES) [Concomitant]

REACTIONS (5)
  - ASTHENIA [None]
  - PAIN [None]
  - SWELLING FACE [None]
  - JOINT SWELLING [None]
  - OEDEMA PERIPHERAL [None]
